FAERS Safety Report 6439189-1 (Version None)
Quarter: 2009Q4

REPORT INFORMATION
  Report Type: 
  Country: None (occurrence: None)
  Receive Date: 20091110
  Receipt Date: 20091026
  Transmission Date: 20100525
  Serious: Yes (Death, Hospitalization, Disabling)
  Sender: FDA-Public Use
  Company Number: 2009AC000156

PATIENT
  Age: 66 Year
  Sex: Female

DRUGS (29)
  1. DIGOXIN [Suspect]
     Dosage: 0.125 MG; QD; PO
     Route: 048
     Dates: start: 20070101, end: 20070501
  2. EXELON [Concomitant]
  3. PREVACID [Concomitant]
  4. SULFAMETHOXAZOLE [Concomitant]
  5. CYMBALTA [Concomitant]
  6. HYDROCODONE [Concomitant]
  7. ZYRTEC [Concomitant]
  8. KLOR-CON [Concomitant]
  9. ALPRAZOLAM [Concomitant]
  10. SPIRONOLACTONE [Concomitant]
  11. FUROSEMIDE [Concomitant]
  12. MORPHINE [Concomitant]
  13. RISPERDAL [Concomitant]
  14. LORAZEPAM [Concomitant]
  15. FOLITAB [Concomitant]
  16. MINITRAN [Concomitant]
  17. COREG [Concomitant]
  18. BONIVA [Concomitant]
  19. LISINOPRIL [Concomitant]
  20. PROTONIX [Concomitant]
  21. CLONAZEPAM [Concomitant]
  22. ALDACTONE [Concomitant]
  23. MORPHINE SULFATE [Concomitant]
  24. NITROGLYCERIN [Concomitant]
  25. LASIX [Concomitant]
  26. LORTAB [Concomitant]
  27. ATIVAN [Concomitant]
  28. PREVACID [Concomitant]
  29. AMBIEN [Concomitant]

REACTIONS (31)
  - ABASIA [None]
  - ARM AMPUTATION [None]
  - ARTHRITIS INFECTIVE [None]
  - ATRIAL FLUTTER [None]
  - ATRIOVENTRICULAR BLOCK [None]
  - ATRIOVENTRICULAR DISSOCIATION [None]
  - BEDRIDDEN [None]
  - BRADYCARDIA [None]
  - CARDIAC FAILURE CONGESTIVE [None]
  - CARDIAC MURMUR [None]
  - CARDIOMYOPATHY [None]
  - CHRONIC OBSTRUCTIVE PULMONARY DISEASE [None]
  - CORONARY ARTERY DISEASE [None]
  - DEMENTIA [None]
  - FALL [None]
  - FEMUR FRACTURE [None]
  - GASTRIC ULCER [None]
  - HIP FRACTURE [None]
  - HYPERTENSION [None]
  - IMPAIRED HEALING [None]
  - INCONTINENCE [None]
  - INFECTION [None]
  - INJURY [None]
  - JOINT INJURY [None]
  - LOWER LIMB FRACTURE [None]
  - OSTEOPOROSIS [None]
  - TACHYARRHYTHMIA [None]
  - TACHYCARDIA [None]
  - THERAPEUTIC AGENT TOXICITY [None]
  - UPPER LIMB FRACTURE [None]
  - WOUND DEHISCENCE [None]
